FAERS Safety Report 5084257-2 (Version None)
Quarter: 2006Q3

REPORT INFORMATION
  Report Type: 
  Country: None (occurrence: None)
  Receive Date: 20060817
  Receipt Date: 20060817
  Transmission Date: 20061208
  Serious: Yes (Other)
  Sender: FDA-Public Use
  Company Number: None

PATIENT
  Age: 40 Year
  Sex: Female

DRUGS (1)
  1. KARIVA [Suspect]
     Indication: CONTRACEPTION
     Dosage: DAILY

REACTIONS (2)
  - DIZZINESS [None]
  - NAUSEA [None]
